FAERS Safety Report 9749027 (Version 2)
Quarter: 2013Q4

REPORT INFORMATION
  Report Type: Spontaneous
  Country: US (occurrence: US)
  Receive Date: 20131212
  Receipt Date: 20131212
  Transmission Date: 20140711
  Serious: Yes (Other)
  Sender: FDA-Public Use
  Company Number: US-ASTELLAS-2013US009586

PATIENT
  Age: 81 Year
  Sex: Male

DRUGS (2)
  1. XTANDI [Suspect]
     Indication: PROSTATE CANCER
     Dosage: 160 MG, UID/QD
     Route: 048
     Dates: start: 20130725, end: 20131021
  2. XTANDI [Suspect]
     Dosage: 160 MG, UID/QD
     Route: 048

REACTIONS (6)
  - Convulsion [Unknown]
  - Rash [Recovered/Resolved]
  - Decreased activity [Unknown]
  - Confusional state [Unknown]
  - Asthenia [Unknown]
  - Pruritus [Recovered/Resolved]
